FAERS Safety Report 4805551-3 (Version None)
Quarter: 2005Q4

REPORT INFORMATION
  Report Type: 
  Country: None (occurrence: None)
  Receive Date: 20051018
  Receipt Date: 20051004
  Transmission Date: 20060501
  Serious: Yes (Hospitalization)
  Sender: FDA-Public Use
  Company Number: 2005BI018550

PATIENT
  Sex: Male
  Weight: 78.4723 kg

DRUGS (1)
  1. AVONEX [Suspect]
     Indication: MULTIPLE SCLEROSIS
     Dosage: 30 UG;QW; IM
     Route: 030

REACTIONS (7)
  - CEREBROVASCULAR ACCIDENT [None]
  - CRANIOTOMY [None]
  - DIPLOPIA [None]
  - ECONOMIC PROBLEM [None]
  - HEADACHE [None]
  - MULTIPLE SCLEROSIS [None]
  - VERTIGO [None]
